FAERS Safety Report 11115653 (Version 2)
Quarter: 2015Q3

REPORT INFORMATION
  Report Type: Report from Study
  Country: PK (occurrence: PK)
  Receive Date: 20150515
  Receipt Date: 20150724
  Transmission Date: 20151125
  Serious: Yes (Other)
  Sender: FDA-Public Use
  Company Number: PK-SA-2015SA061557

PATIENT
  Age: 43 Year
  Sex: Female
  Weight: 60 kg

DRUGS (7)
  1. SPIROMIDE [Concomitant]
     Indication: RENAL DISORDER
     Route: 048
     Dates: start: 201504
  2. LANTUS SOLOSTAR [Suspect]
     Active Substance: INSULIN GLARGINE
     Indication: DIABETES MELLITUS
     Route: 058
     Dates: start: 2013, end: 201505
  3. SOLOSTAR [Concomitant]
     Active Substance: DEVICE
     Indication: DEVICE THERAPY
     Dates: start: 2013, end: 2015
  4. X-PLENDED [Concomitant]
     Indication: HYPERLIPIDAEMIA
     Route: 048
     Dates: start: 2012
  5. CARDNIT [Concomitant]
     Indication: CARDIAC DISORDER
     Route: 048
     Dates: start: 2014
  6. CONCOR [Concomitant]
     Active Substance: BISOPROLOL FUMARATE
     Indication: HYPERTENSION
     Route: 048
     Dates: start: 2014
  7. TREVIAMET [Concomitant]
     Indication: DIABETES MELLITUS
     Dosage: DOSE: 50/500 MG
     Route: 048
     Dates: start: 2013

REACTIONS (8)
  - Weight increased [Unknown]
  - Angioplasty [Unknown]
  - Diarrhoea [Unknown]
  - Blood glucose increased [Recovered/Resolved]
  - Cyst removal [Unknown]
  - Arthralgia [Unknown]
  - Renal pain [Unknown]
  - Peripheral swelling [Unknown]

NARRATIVE: CASE EVENT DATE: 2013
